FAERS Safety Report 7214722-0 (Version None)
Quarter: 2011Q1

REPORT INFORMATION
  Report Type: 
  Country: None (occurrence: None)
  Receive Date: 20110107
  Receipt Date: 20091218
  Transmission Date: 20110831
  Serious: No
  Sender: FDA-Public Use
  Company Number: A0836297A

PATIENT

DRUGS (1)
  1. LOVAZA [Suspect]
     Route: 048

REACTIONS (2)
  - NO ADVERSE EVENT [None]
  - WRONG TECHNIQUE IN DRUG USAGE PROCESS [None]
